FAERS Safety Report 12038929 (Version 1)
Quarter: 2016Q1

REPORT INFORMATION
  Report Type: Spontaneous
  Country: US (occurrence: None)
  Receive Date: 20160205
  Receipt Date: 20160205
  Transmission Date: 20160526
  Serious: No
  Sender: FDA-Public Use
  Company Number: None

PATIENT
  Age: 52 Year
  Sex: Female

DRUGS (2)
  1. VIEKIRA PAK [Concomitant]
     Active Substance: DASABUVIR\OMBITASVIR\PARITAPREVIR\RITONAVIR
  2. RIBAVIRIN. [Suspect]
     Active Substance: RIBAVIRIN
     Indication: HEPATITIS C
     Route: 048
     Dates: start: 201509, end: 201601

REACTIONS (1)
  - Rash [None]

NARRATIVE: CASE EVENT DATE: 20160110
